FAERS Safety Report 7523776-3 (Version None)
Quarter: 2011Q2

REPORT INFORMATION
  Report Type: 
  Country: None (occurrence: None)
  Receive Date: 20110603
  Receipt Date: 20110527
  Transmission Date: 20111010
  Serious: Yes (Hospitalization)
  Sender: FDA-Public Use
  Company Number: US-ACTELION-A-US2011-46510

PATIENT

DRUGS (3)
  1. TRACLEER [Suspect]
     Indication: PULMONARY ARTERIAL HYPERTENSION
     Dosage: 125 MG, BID
     Route: 048
     Dates: start: 20090501
  2. COUMADIN [Suspect]
  3. REVATIO [Concomitant]

REACTIONS (8)
  - CONTUSION [None]
  - MASS [None]
  - FOAMING AT MOUTH [None]
  - CONSTIPATION [None]
  - POLYP [None]
  - ANTICOAGULATION DRUG LEVEL ABOVE THERAPEUTIC [None]
  - HAEMORRHAGE [None]
  - TRANSFUSION [None]
